FAERS Safety Report 16034671 (Version 1)
Quarter: 2019Q1

REPORT INFORMATION
  Report Type: Spontaneous
  Country: GB (occurrence: GB)
  Receive Date: 20190305
  Receipt Date: 20190305
  Transmission Date: 20190418
  Serious: Yes (Other)
  Sender: FDA-Public Use
  Company Number: GB-DRREDDYS-GER/UKI/19/0108214

PATIENT
  Sex: Female

DRUGS (1)
  1. MEMANTINE 10 MG FILM-COATED TABLETS, DR. REDDY^S [Suspect]
     Active Substance: MEMANTINE
     Indication: DEMENTIA
     Route: 048

REACTIONS (3)
  - Off label use [Unknown]
  - Treatment noncompliance [Unknown]
  - Condition aggravated [Unknown]
